FAERS Safety Report 9474860 (Version 1)
Quarter: 2013Q3

REPORT INFORMATION
  Report Type: Spontaneous
  Country: RU (occurrence: RU)
  Receive Date: 20130823
  Receipt Date: 20130823
  Transmission Date: 20140515
  Serious: Yes (Life-Threatening, Hospitalization, Disabling)
  Sender: FDA-Public Use
  Company Number: RU-ASTRAZENECA-2013SE64810

PATIENT
  Age: 60 Year
  Sex: Female
  Weight: 69 kg

DRUGS (3)
  1. FASLODEX [Suspect]
     Indication: BREAST CANCER METASTATIC
     Route: 030
     Dates: start: 201302, end: 20130819
  2. FASLODEX [Suspect]
     Indication: BREAST CANCER METASTATIC
     Route: 030
     Dates: start: 20130819
  3. BISPHOSPHONATES [Concomitant]
     Indication: METASTASES TO BONE
     Dosage: UNKNOWN DOSE MONTHLY
     Route: 042

REACTIONS (1)
  - Cerebrovascular accident [Recovering/Resolving]
